FAERS Safety Report 10333856 (Version 1)
Quarter: 2014Q3

REPORT INFORMATION
  Report Type: Spontaneous
  Country: US (occurrence: US)
  Receive Date: 20140723
  Receipt Date: 20140723
  Transmission Date: 20150326
  Serious: No
  Sender: FDA-Public Use
  Company Number: US-BIOGENIDEC-2014BI071728

PATIENT
  Sex: Male

DRUGS (1)
  1. TYSABRI [Suspect]
     Active Substance: NATALIZUMAB
     Indication: MULTIPLE SCLEROSIS
     Route: 042
     Dates: start: 20120808

REACTIONS (9)
  - Limb asymmetry [Not Recovered/Not Resolved]
  - Multiple sclerosis relapse [Recovered/Resolved]
  - Rhinorrhoea [Recovered/Resolved]
  - Vitamin D decreased [Not Recovered/Not Resolved]
  - Depression [Recovered/Resolved]
  - Drug effect incomplete [Not Recovered/Not Resolved]
  - Malaise [Recovered/Resolved]
  - Mental impairment [Not Recovered/Not Resolved]
  - Hypersensitivity [Recovered/Resolved]
